FAERS Safety Report 10398143 (Version 1)
Quarter: 2014Q1

REPORT INFORMATION
  Report Type: Spontaneous
  Country: US (occurrence: None)
  Receive Date: 20130815
  Receipt Date: 20130815
  Transmission Date: 20141002
  Serious: Yes (Other)
  Sender: FDA-Public Use
  Company Number: ADR-2013-00495

PATIENT
  Age: 8 Year
  Sex: Male

DRUGS (1)
  1. LIORESAL INTRATHECAL (BACLOFEN INJECTION) 2000MCG/ML [Suspect]
     Indication: MUSCLE SPASTICITY

REACTIONS (9)
  - Hypotonia [None]
  - Musculoskeletal stiffness [None]
  - Muscle spasticity [None]
  - Tremor [None]
  - Unevaluable event [None]
  - No therapeutic response [None]
  - Muscle spasms [None]
  - Spinal cord injury [None]
  - Clonus [None]
